FAERS Safety Report 4302914-X (Version None)
Quarter: 2004Q1

REPORT INFORMATION
  Report Type: 
  Country: None (occurrence: None)
  Receive Date: 20040220
  Receipt Date: 20040209
  Transmission Date: 20041129
  Serious: Yes (Hospitalization)
  Sender: FDA-Public Use
  Company Number: US-JNJFOC-20040202074

PATIENT
  Age: 49 Year
  Sex: Female
  Weight: 55.3388 kg

DRUGS (4)
  1. REMICADE [Suspect]
     Indication: CROHN'S DISEASE
     Dosage: INTRAVENOUS
     Route: 042
  2. ASACOL [Concomitant]
  3. PREDNISONE [Concomitant]
  4. HYDROCODONE ( ) HYDROCODONE [Concomitant]

REACTIONS (7)
  - ANAL HAEMORRHAGE [None]
  - MOUTH HAEMORRHAGE [None]
  - PLATELET COUNT DECREASED [None]
  - RED BLOOD CELL COUNT DECREASED [None]
  - SECRETION DISCHARGE [None]
  - SINUSITIS [None]
  - WEIGHT INCREASED [None]
